FAERS Safety Report 15557020 (Version 3)
Quarter: 2018Q4

REPORT INFORMATION
  Report Type: Spontaneous
  Country: JP (occurrence: JP)
  Receive Date: 20181026
  Receipt Date: 20181107
  Transmission Date: 20190205
  Serious: Yes (Life-Threatening, Hospitalization)
  Sender: FDA-Public Use
  Company Number: JP-ASTRAZENECA-2018SF19832

PATIENT
  Age: 68 Year
  Sex: Female
  Weight: 51 kg

DRUGS (12)
  1. THYRADIN S [Concomitant]
     Active Substance: LEVOTHYROXINE SODIUM
     Indication: HYPOPITUITARISM
     Route: 048
     Dates: start: 20180926
  2. SENNOSIDE [Concomitant]
     Active Substance: SENNOSIDES
     Indication: CONSTIPATION
     Dosage: 12.0MG AS REQUIRED
     Route: 048
     Dates: start: 20180810
  3. MINIRINMELT OD [Concomitant]
     Indication: DIABETES INSIPIDUS
     Route: 048
     Dates: start: 20180912
  4. TERPERAN [Concomitant]
     Active Substance: METOCLOPRAMIDE HYDROCHLORIDE
     Dosage: 5.0MG AS REQUIRED
     Route: 048
     Dates: start: 20180810
  5. BETAMETHASONE. [Concomitant]
     Active Substance: BETAMETHASONE
     Route: 048
     Dates: start: 20180911, end: 20180914
  6. MAGMITT [Concomitant]
     Active Substance: MAGNESIUM OXIDE
     Indication: CONSTIPATION
     Route: 048
     Dates: start: 20180912
  7. CORTRIL [Concomitant]
     Active Substance: HYDROCORTISONE
     Indication: HYPOPITUITARISM
     Route: 048
     Dates: start: 20180921
  8. RINDERON V [Concomitant]
     Active Substance: BETAMETHASONE VALERATE
     Route: 041
     Dates: start: 20180830, end: 20180903
  9. RINDERON V [Concomitant]
     Active Substance: BETAMETHASONE VALERATE
     Route: 041
     Dates: start: 20180904, end: 20180906
  10. RINDERON V [Concomitant]
     Active Substance: BETAMETHASONE VALERATE
     Route: 041
     Dates: start: 20180907, end: 20180910
  11. TAGRISSO [Suspect]
     Active Substance: OSIMERTINIB
     Indication: NON-SMALL CELL LUNG CANCER
     Route: 048
     Dates: start: 20180831, end: 20181014
  12. JANUVIA [Concomitant]
     Active Substance: SITAGLIPTIN PHOSPHATE
     Indication: TYPE 2 DIABETES MELLITUS
     Route: 048
     Dates: start: 20180831

REACTIONS (4)
  - Diabetes insipidus [Unknown]
  - Hypopituitarism [Unknown]
  - Hepatic function abnormal [Recovered/Resolved]
  - Cardiac tamponade [Unknown]

NARRATIVE: CASE EVENT DATE: 20180910
